FAERS Safety Report 4563966-5 (Version None)
Quarter: 2005Q1

REPORT INFORMATION
  Report Type: 
  Country: None (occurrence: None)
  Receive Date: 20050121
  Receipt Date: 20050107
  Transmission Date: 20050727
  Serious: Yes (Other)
  Sender: FDA-Public Use
  Company Number: 2005010206

PATIENT
  Age: 53 Year
  Sex: Female
  Weight: 65.1 kg

DRUGS (6)
  1. AZITHROMYCIN [Suspect]
     Indication: PNEUMONIA
     Dosage: 300 MG (300 MG, 1 IN 1 D), ORAL
     Route: 048
     Dates: start: 20041117, end: 20041119
  2. FLUTICASONE PROPIONATE [Concomitant]
  3. BECLOMETHASONE DIPROPIONATE [Concomitant]
  4. FEXOFENADINE HCL [Concomitant]
  5. ALENDRONATE SODIUM [Concomitant]
  6. SALBUTMOL (SALBUTAMOL) [Concomitant]

REACTIONS (2)
  - DISORIENTATION [None]
  - DIZZINESS [None]
